FAERS Safety Report 8496274-0 (Version None)
Quarter: 2012Q3

REPORT INFORMATION
  Report Type: 
  Country: None (occurrence: None)
  Receive Date: 20120709
  Receipt Date: 20120704
  Transmission Date: 20120928
  Serious: Yes (Hospitalization)
  Sender: FDA-Public Use
  Company Number: IT-PFIZER INC-2012151748

PATIENT
  Age: 39 Year
  Sex: Female

DRUGS (5)
  1. DIANE [Concomitant]
     Dosage: UNK
  2. ALLOPURINOL [Concomitant]
     Dosage: UNK
  3. SOLU-MEDROL [Suspect]
     Indication: BACK PAIN
     Dosage: 125 MG, 1X/DAY
     Route: 030
     Dates: start: 20120323
  4. INDERAL [Concomitant]
     Dosage: UNK
  5. LEVOTHYROXINE SODIUM [Concomitant]
     Dosage: UNK

REACTIONS (3)
  - ASTHENIA [None]
  - MUSCULAR WEAKNESS [None]
  - ABASIA [None]
